FAERS Safety Report 18374016 (Version 9)
Quarter: 2025Q1

REPORT INFORMATION
  Report Type: Spontaneous
  Country: AT (occurrence: AT)
  Receive Date: 20201013
  Receipt Date: 20250327
  Transmission Date: 20250409
  Serious: Yes (Hospitalization, Other)
  Sender: SANOFI AVENTIS
  Company Number: AT-EMA-DD-20200930-SAHARAN_H-110555

PATIENT
  Age: 66 Year
  Sex: Female
  Weight: 80.4 kg

DRUGS (186)
  1. TAXOTERE [Suspect]
     Active Substance: DOCETAXEL
     Indication: Breast cancer metastatic
     Dosage: 190 MG, Q3W, MOST RECENT DOSE PRIOR TO THE EVENTS: 09/JUN/2017
     Route: 042
     Dates: start: 20170224, end: 20170317
  2. TAXOTERE [Suspect]
     Active Substance: DOCETAXEL
     Dosage: 183 MG, QD
     Route: 042
     Dates: start: 20170519, end: 20170519
  3. TAXOTERE [Suspect]
     Active Substance: DOCETAXEL
     Dosage: 180 MG, Q3W
     Route: 042
     Dates: start: 20170609, end: 20170630
  4. TAXOTERE [Suspect]
     Active Substance: DOCETAXEL
     Dosage: 134.25 MG, Q3W
     Route: 042
     Dates: start: 20210317, end: 20210428
  5. TAXOTERE [Suspect]
     Active Substance: DOCETAXEL
     Dosage: 175 MG, QD
     Route: 042
     Dates: start: 20170410, end: 20170427
  6. TAXOTERE [Suspect]
     Active Substance: DOCETAXEL
     Dosage: 540 MG, Q3W
     Route: 042
     Dates: start: 20170609, end: 20170630
  7. TAXOTERE [Suspect]
     Active Substance: DOCETAXEL
     Dosage: 402.75 MG, Q3W
     Route: 042
     Dates: start: 20210317, end: 20210328
  8. TAXOTERE [Suspect]
     Active Substance: DOCETAXEL
     Dosage: 570 MG, Q3W
     Route: 042
     Dates: start: 20170224
  9. TAXOTERE [Suspect]
     Active Substance: DOCETAXEL
     Dosage: 40.75 MG, Q3W
     Route: 042
     Dates: start: 20210317, end: 20210328
  10. CAPECITABINE [Suspect]
     Active Substance: CAPECITABINE
     Indication: Breast cancer
     Dosage: 3500 MG, QD, MOST RECENT DOSE PRIOR TO THE EVENT LYMPH NODE METASTATIS AXILLA AND PORT A CATH INFECT
     Route: 048
     Dates: start: 20191002, end: 20200107
  11. CAPECITABINE [Suspect]
     Active Substance: CAPECITABINE
     Dosage: 3000 MG, QD
     Route: 048
     Dates: start: 20200108, end: 20200421
  12. CAPECITABINE [Suspect]
     Active Substance: CAPECITABINE
     Dosage: 2000 MG, QD; DAILY FOR 2 WEEKS THEN PAUSE FOR 1 WEEK
     Route: 048
     Dates: start: 20191002, end: 20200107
  13. CAPECITABINE [Suspect]
     Active Substance: CAPECITABINE
     Dosage: 3500 MG, QD
     Route: 048
     Dates: start: 20210210, end: 20210224
  14. CAPECITABINE [Suspect]
     Active Substance: CAPECITABINE
     Dosage: 300 MG, QD
     Dates: start: 20200108
  15. CAPECITABINE [Suspect]
     Active Substance: CAPECITABINE
     Dosage: 3000 MG, QD
     Route: 048
  16. BLEOMYCIN SULFATE [Suspect]
     Active Substance: BLEOMYCIN SULFATE
     Indication: Breast cancer metastatic
     Dosage: 26.85 MG, QD
     Route: 042
     Dates: start: 20200519, end: 20200519
  17. BLEOMYCIN SULFATE [Suspect]
     Active Substance: BLEOMYCIN SULFATE
     Dosage: 26.85 MG, QD
     Route: 042
     Dates: start: 20210105, end: 20210105
  18. BLEOMYCIN SULFATE [Suspect]
     Active Substance: BLEOMYCIN SULFATE
     Dosage: 1 DF, QD
     Route: 042
     Dates: start: 20210105, end: 20210105
  19. BLEOMYCIN SULFATE [Suspect]
     Active Substance: BLEOMYCIN SULFATE
     Dosage: 26.85 MG, QD
     Route: 042
  20. TRASTUZUMAB [Suspect]
     Active Substance: TRASTUZUMAB
     Indication: Breast cancer metastatic
     Dosage: 624 MG, QD; MOST RECENT DOSE PRIOR TO THE EVENTS: 10/AUG/2017
     Route: 041
     Dates: start: 20170224, end: 20170224
  21. TRASTUZUMAB [Suspect]
     Active Substance: TRASTUZUMAB
     Indication: HER2 positive breast cancer
     Route: 041
     Dates: start: 20170410, end: 20170427
  22. TRASTUZUMAB [Suspect]
     Active Substance: TRASTUZUMAB
     Dosage: 432 MG, QD
     Route: 065
     Dates: start: 20170519, end: 20170519
  23. TRASTUZUMAB [Suspect]
     Active Substance: TRASTUZUMAB
     Dosage: 414 MG, Q3W
     Route: 041
     Dates: start: 20170609, end: 20170630
  24. TRASTUZUMAB [Suspect]
     Active Substance: TRASTUZUMAB
     Dosage: 468 MG, QD
     Route: 041
     Dates: start: 20170720, end: 20170720
  25. TRASTUZUMAB [Suspect]
     Active Substance: TRASTUZUMAB
     Dosage: 462 MG, Q3W
     Route: 041
     Dates: start: 20170810, end: 20190213
  26. TRASTUZUMAB [Suspect]
     Active Substance: TRASTUZUMAB
     Dosage: 468 MG/KG, QD
     Route: 065
     Dates: start: 20200317, end: 20200317
  27. TRASTUZUMAB [Suspect]
     Active Substance: TRASTUZUMAB
     Dosage: 540 MG, Q3W
     Route: 041
     Dates: start: 20200422, end: 20200615
  28. TRASTUZUMAB [Suspect]
     Active Substance: TRASTUZUMAB
     Dosage: 560 MG, Q3W
     Route: 041
     Dates: start: 20201230, end: 20210210
  29. TRASTUZUMAB [Suspect]
     Active Substance: TRASTUZUMAB
     Dosage: 408 MG, Q3W
     Route: 041
     Dates: start: 20210317, end: 20210428
  30. TYKERB [Suspect]
     Active Substance: LAPATINIB DITOSYLATE
     Indication: Breast cancer
     Dosage: 1250 MG, QD, MOST RECENT DOSE PRIOR TO THE EVENT LYMPH NODE METASTATIS AXILLA AND PORT A CATH INFECT
     Route: 048
     Dates: start: 20191002, end: 20200107
  31. TYKERB [Suspect]
     Active Substance: LAPATINIB DITOSYLATE
     Indication: Breast cancer metastatic
     Dosage: 1000 MG, QD
     Route: 048
     Dates: start: 20200108, end: 20200421
  32. PERJETA [Suspect]
     Active Substance: PERTUZUMAB
     Indication: Breast cancer metastatic
     Dosage: 840 MG, QD, MOST RECENT DOSE PRIOR TO THE EVENT WORSENING OF BRAIN METASTASES: 17/MAR/2017 MOST RECE
     Route: 042
     Dates: start: 20170224, end: 20170224
  33. PERJETA [Suspect]
     Active Substance: PERTUZUMAB
     Dosage: 840 MG, QD
     Route: 042
     Dates: start: 20200422, end: 20200615
  34. PERJETA [Suspect]
     Active Substance: PERTUZUMAB
     Dosage: 840 MG, QD
     Route: 042
     Dates: start: 20210317, end: 20210428
  35. FASLODEX [Suspect]
     Active Substance: FULVESTRANT
     Indication: Breast cancer
     Dosage: MOST RECENT DOSE PRIOR TO THE EVENT LYMPH NODE METASTATIS AXILLA AND PORT A CATH INFECTION: 16/NOV/2
     Route: 058
     Dates: start: 20171002, end: 20171115
  36. FASLODEX [Suspect]
     Active Substance: FULVESTRANT
     Indication: Breast cancer metastatic
     Dosage: 500 MG, QM
     Route: 058
     Dates: start: 20171116, end: 20191001
  37. NAVELBINE [Suspect]
     Active Substance: VINORELBINE TARTRATE
     Indication: Breast cancer metastatic
     Dosage: 45 MG, Q3W
     Route: 042
     Dates: start: 20200422
  38. FAM-TRASTUZUMAB DERUXTECAN-NXKI [Suspect]
     Active Substance: FAM-TRASTUZUMAB DERUXTECAN-NXKI
     Indication: Breast cancer metastatic
     Route: 058
     Dates: start: 20200814, end: 20201015
  39. KADCYLA [Suspect]
     Active Substance: ADO-TRASTUZUMAB EMTANSINE
     Indication: Breast cancer metastatic
     Dosage: 270 MG, Q3W
     Route: 042
     Dates: start: 20190306, end: 20190909
  40. TUCATINIB [Suspect]
     Active Substance: TUCATINIB
     Indication: Breast cancer metastatic
     Route: 048
     Dates: start: 20201230, end: 20210210
  41. DENOSUMAB [Suspect]
     Active Substance: DENOSUMAB
     Indication: Breast cancer metastatic
     Dosage: 120 MG, Q4W
     Route: 042
     Dates: start: 20201230, end: 20210210
  42. DOXIL [Suspect]
     Active Substance: DOXORUBICIN HYDROCHLORIDE
     Indication: Breast cancer metastatic
     Dosage: 104.4 MG, QD
     Route: 042
     Dates: start: 20210608, end: 20210608
  43. PEGFILGRASTIM [Suspect]
     Active Substance: PEGFILGRASTIM
     Indication: Product used for unknown indication
     Route: 065
     Dates: start: 20210610, end: 20210610
  44. XELODA [Suspect]
     Active Substance: CAPECITABINE
  45. KCL [Concomitant]
     Active Substance: POTASSIUM CHLORIDE
     Dates: start: 20170429
  46. KCL [Concomitant]
     Active Substance: POTASSIUM CHLORIDE
     Dates: start: 20170429, end: 20190305
  47. XGEVA [Concomitant]
     Active Substance: DENOSUMAB
     Dates: start: 20170202
  48. XGEVA [Concomitant]
     Active Substance: DENOSUMAB
  49. XGEVA [Concomitant]
     Active Substance: DENOSUMAB
     Dates: start: 20170202, end: 20210521
  50. CALCIUM CARBONATE\CHOLECALCIFEROL [Concomitant]
     Active Substance: CALCIUM CARBONATE\CHOLECALCIFEROL
     Indication: Paronychia
     Dates: start: 20170203
  51. CALCIUM CARBONATE\CHOLECALCIFEROL [Concomitant]
     Active Substance: CALCIUM CARBONATE\CHOLECALCIFEROL
  52. OLIVE OIL [Concomitant]
     Active Substance: OLIVE OIL
     Indication: Paronychia
     Dates: start: 20191002, end: 20200512
  53. OLIVE OIL [Concomitant]
     Active Substance: OLIVE OIL
     Dates: start: 20191002, end: 20200512
  54. TAZOBACTAM [Concomitant]
     Active Substance: TAZOBACTAM
     Indication: Streptococcal sepsis
     Dates: start: 20200423, end: 20200504
  55. TAZOBACTAM [Concomitant]
     Active Substance: TAZOBACTAM
     Indication: Streptococcal sepsis
  56. TAZOBACTAM [Concomitant]
     Active Substance: TAZOBACTAM
     Indication: Product used for unknown indication
     Dates: start: 20200423, end: 20200504
  57. TAZOBACTAM [Concomitant]
     Active Substance: TAZOBACTAM
     Indication: Product used for unknown indication
     Dates: start: 20170708, end: 20170710
  58. ACETAMINOPHEN [Concomitant]
     Active Substance: ACETAMINOPHEN
     Indication: Pseudomonal sepsis
     Dates: start: 20200506
  59. ACETAMINOPHEN [Concomitant]
     Active Substance: ACETAMINOPHEN
     Dates: start: 20200506, end: 20201215
  60. ACETAMINOPHEN [Concomitant]
     Active Substance: ACETAMINOPHEN
     Dates: start: 20210622, end: 20210622
  61. ACETAMINOPHEN [Concomitant]
     Active Substance: ACETAMINOPHEN
     Dates: start: 20200506, end: 20210622
  62. ACETAMINOPHEN [Concomitant]
     Active Substance: ACETAMINOPHEN
     Route: 065
     Dates: end: 20210622
  63. FUROSEMIDE [Concomitant]
     Active Substance: FUROSEMIDE
     Dates: start: 20170810, end: 20171213
  64. EDOXABAN TOSYLATE [Concomitant]
     Active Substance: EDOXABAN TOSYLATE
     Dates: start: 20191120, end: 20200608
  65. EDOXABAN TOSYLATE [Concomitant]
     Active Substance: EDOXABAN TOSYLATE
     Dates: start: 20200613, end: 20210611
  66. EDOXABAN TOSYLATE [Concomitant]
     Active Substance: EDOXABAN TOSYLATE
     Dates: start: 20200613, end: 20210611
  67. PREGABALIN [Concomitant]
     Active Substance: PREGABALIN
     Dates: start: 20190821
  68. PANTOPRAZOLE [Concomitant]
     Active Substance: PANTOPRAZOLE
     Dates: start: 20170722, end: 20180327
  69. PANTOPRAZOLE [Concomitant]
     Active Substance: PANTOPRAZOLE
     Dates: start: 20200506, end: 20200519
  70. METOCLOPRAMIDE HYDROCHLORIDE [Concomitant]
     Active Substance: METOCLOPRAMIDE HYDROCHLORIDE
     Dates: start: 20200506
  71. NOVALGIN (METAMIZOLE SODIUM) [Concomitant]
     Active Substance: METAMIZOLE SODIUM
     Dates: start: 20170329, end: 20180807
  72. LOVENOX [Concomitant]
     Active Substance: ENOXAPARIN SODIUM
     Dates: start: 20170224, end: 20171130
  73. EMEND [Concomitant]
     Active Substance: APREPITANT
     Dates: start: 20200428, end: 20200430
  74. DEXAMETHASONE [Concomitant]
     Active Substance: DEXAMETHASONE
     Indication: Brain oedema
     Dates: start: 20171004, end: 20171006
  75. DEXAMETHASONE [Concomitant]
     Active Substance: DEXAMETHASONE
     Dates: start: 20171007, end: 20171008
  76. DEXAMETHASONE [Concomitant]
     Active Substance: DEXAMETHASONE
     Dates: start: 20200422, end: 20200505
  77. OLEOVIT [BENZALKONIUM CHLORIDE;DEXPANTHENOL;RETINOL PALMITATE] [Concomitant]
     Dates: start: 20170329
  78. LEVOFLOXACIN [Concomitant]
     Active Substance: LEVOFLOXACIN
     Indication: Product used for unknown indication
     Dates: start: 20200506, end: 20200512
  79. LEVOFLOXACIN [Concomitant]
     Active Substance: LEVOFLOXACIN
     Route: 065
  80. FENTANYL [Concomitant]
     Active Substance: FENTANYL
     Dates: start: 20200515
  81. FENTANYL [Concomitant]
     Active Substance: FENTANYL
     Route: 062
     Dates: start: 20200515
  82. EUTHYROX [Concomitant]
     Active Substance: LEVOTHYROXINE SODIUM
     Dates: start: 20170303
  83. LEUKICHTAN [COD-LIVER OIL;ICHTHAMMOL] [Concomitant]
     Dates: start: 20200430, end: 20200515
  84. CITRIC ACID MONOHYDRATE\POTASSIUM BICARBONATE\POTASSIUM CITRATE [Concomitant]
     Active Substance: CITRIC ACID MONOHYDRATE\POTASSIUM BICARBONATE\POTASSIUM CITRATE
     Dates: start: 20200427, end: 20200428
  85. BETAISODONA [Concomitant]
     Active Substance: POVIDONE-IODINE
     Indication: Skin fissures
     Dates: start: 20200430, end: 20200515
  86. BETAISODONA [Concomitant]
     Active Substance: POVIDONE-IODINE
     Dates: start: 20200430, end: 20200515
  87. ZOFRAN [Concomitant]
     Active Substance: ONDANSETRON HYDROCHLORIDE
     Dates: start: 20200506
  88. DIFLUCORTOLONE;LIDOCAINE [Concomitant]
     Indication: Skin fissures
     Route: 065
     Dates: start: 20200430, end: 20200515
  89. HALSET [CETYLPYRIDINIUM CHLORIDE] [Concomitant]
     Indication: Cough
     Dates: start: 20210611, end: 20210615
  90. SCOTTOPECT [Concomitant]
     Indication: Cough
     Dates: start: 20210611, end: 20210613
  91. SCOTTOPECT [Concomitant]
     Dates: start: 20210611, end: 20210613
  92. SCOTTOPECT [Concomitant]
     Dates: start: 20210611, end: 20210613
  93. POLYETHYLENE GLYCOL 3350\POTASSIUM CHLORIDE\SODIUM BICARBONATE\SODIUM [Concomitant]
     Active Substance: POLYETHYLENE GLYCOL 3350\POTASSIUM CHLORIDE\SODIUM BICARBONATE\SODIUM CHLORIDE
     Indication: Product used for unknown indication
     Dates: start: 20210608, end: 20210616
  94. POLYETHYLENE GLYCOL 3350\POTASSIUM CHLORIDE\SODIUM BICARBONATE\SODIUM [Concomitant]
     Active Substance: POLYETHYLENE GLYCOL 3350\POTASSIUM CHLORIDE\SODIUM BICARBONATE\SODIUM CHLORIDE
     Indication: Product used for unknown indication
     Dates: start: 20210608, end: 20210616
  95. POLYETHYLENE GLYCOL 3350\POTASSIUM CHLORIDE\SODIUM BICARBONATE\SODIUM [Concomitant]
     Active Substance: POLYETHYLENE GLYCOL 3350\POTASSIUM CHLORIDE\SODIUM BICARBONATE\SODIUM CHLORIDE
     Dates: start: 20210608, end: 20210616
  96. POLYETHYLENE GLYCOL 3350\POTASSIUM CHLORIDE\SODIUM BICARBONATE\SODIUM [Concomitant]
     Active Substance: POLYETHYLENE GLYCOL 3350\POTASSIUM CHLORIDE\SODIUM BICARBONATE\SODIUM CHLORIDE
     Route: 065
     Dates: start: 20170709, end: 20170709
  97. LACTULOSE [Concomitant]
     Active Substance: LACTULOSE
  98. LACTULOSE [Concomitant]
     Active Substance: LACTULOSE
  99. HYDROMORPHONE HYDROCHLORIDE [Concomitant]
     Active Substance: HYDROMORPHONE HYDROCHLORIDE
     Dates: start: 20210611, end: 20210615
  100. HYDROMORPHONE HYDROCHLORIDE [Concomitant]
     Active Substance: HYDROMORPHONE HYDROCHLORIDE
     Dates: start: 20210611, end: 20210615
  101. HYDROMORPHONE HYDROCHLORIDE [Concomitant]
     Active Substance: HYDROMORPHONE HYDROCHLORIDE
     Dates: start: 20210611, end: 20210615
  102. ONDANSETRON [Concomitant]
     Active Substance: ONDANSETRON
     Indication: Gastrointestinal disorder
     Dates: start: 20210608, end: 20210610
  103. ONDANSETRON [Concomitant]
     Active Substance: ONDANSETRON
     Dates: start: 20210608, end: 20210610
  104. ONDANSETRON [Concomitant]
     Active Substance: ONDANSETRON
     Dates: start: 20210608, end: 20210610
  105. DRONABINOL [Concomitant]
     Active Substance: DRONABINOL
     Dates: start: 20210608, end: 20210612
  106. DRONABINOL [Concomitant]
     Active Substance: DRONABINOL
     Dates: start: 20210608, end: 20210612
  107. VITAMIN C [Concomitant]
     Active Substance: ASCORBIC ACID
     Indication: Gastrointestinal disorder
     Dates: start: 20210611, end: 20210614
  108. ZIEXTENZO [Concomitant]
     Active Substance: PEGFILGRASTIM-BMEZ
     Dates: start: 20210610, end: 20210610
  109. PONVERIDOL [Concomitant]
     Indication: Gastrointestinal disorder
     Dates: start: 20210618, end: 20210623
  110. PONVERIDOL [Concomitant]
     Dates: start: 20210618, end: 20210623
  111. PONVERIDOL [Concomitant]
     Dates: start: 20210618, end: 20210623
  112. PARACODIN [DIHYDROCODEINE] [Concomitant]
     Indication: Cough
     Dates: start: 20210428, end: 20210615
  113. PARACODIN [DIHYDROCODEINE] [Concomitant]
     Dates: start: 20210608, end: 20210610
  114. DROPERIDOL [Concomitant]
     Active Substance: DROPERIDOL
     Indication: Gastrointestinal disorder
     Dates: start: 20210612, end: 20210617
  115. DROPERIDOL [Concomitant]
     Active Substance: DROPERIDOL
     Dates: start: 20210612, end: 20210617
  116. DROPERIDOL [Concomitant]
     Active Substance: DROPERIDOL
     Dates: start: 20210612, end: 20210617
  117. MORPHINE [Concomitant]
     Active Substance: MORPHINE
     Indication: Dyspnoea
     Dates: start: 20210521, end: 20210616
  118. MORPHINE [Concomitant]
     Active Substance: MORPHINE
     Indication: Dyspnoea
     Dates: start: 20210616, end: 20210623
  119. MORPHINE [Concomitant]
     Active Substance: MORPHINE
     Dates: start: 20210616, end: 20210623
  120. MORPHINE [Concomitant]
     Active Substance: MORPHINE
     Dates: start: 20210521, end: 20210616
  121. ALPRAZOLAM [Concomitant]
     Active Substance: ALPRAZOLAM
     Indication: Restlessness
     Dates: start: 20210613, end: 20210615
  122. ALPRAZOLAM [Concomitant]
     Active Substance: ALPRAZOLAM
     Dates: start: 20210613, end: 20210615
  123. ALPRAZOLAM [Concomitant]
     Active Substance: ALPRAZOLAM
  124. NERIFORTE [Concomitant]
     Indication: Skin fissures
  125. NERIFORTE [Concomitant]
     Route: 061
     Dates: start: 20200430, end: 20200515
  126. BUTYLSCOPOLAMINE BROMIDE [Concomitant]
     Active Substance: BUTYLSCOPOLAMINE BROMIDE
     Indication: Gastrointestinal disorder
     Dates: start: 20210618, end: 20210618
  127. BUTYLSCOPOLAMINE BROMIDE [Concomitant]
     Active Substance: BUTYLSCOPOLAMINE BROMIDE
     Dates: start: 20210618, end: 20210618
  128. BUTYLSCOPOLAMINE BROMIDE [Concomitant]
     Active Substance: BUTYLSCOPOLAMINE BROMIDE
     Dates: start: 20210618, end: 20210618
  129. LORAZEPAM [Concomitant]
     Active Substance: LORAZEPAM
     Indication: Restlessness
     Dates: start: 20210618, end: 20210623
  130. LORAZEPAM [Concomitant]
     Active Substance: LORAZEPAM
     Dates: start: 20210618, end: 20210623
  131. LORAZEPAM [Concomitant]
     Active Substance: LORAZEPAM
     Indication: Restlessness
     Dates: start: 20210611, end: 20210621
  132. BETAMETHASONE DIPROPIONATE [Concomitant]
     Active Substance: BETAMETHASONE DIPROPIONATE
     Indication: Eczema
     Dates: start: 20191122
  133. PANTOPRAZOLE [Concomitant]
     Active Substance: PANTOPRAZOLE
     Indication: Gastrointestinal disorder
     Dates: start: 20210317, end: 20210607
  134. PANTOPRAZOLE [Concomitant]
     Active Substance: PANTOPRAZOLE
     Dates: start: 20210618, end: 20210623
  135. PANTOPRAZOLE [Concomitant]
     Active Substance: PANTOPRAZOLE
     Dates: start: 20210317, end: 20210607
  136. PANTOPRAZOLE [Concomitant]
     Active Substance: PANTOPRAZOLE
     Dates: start: 20210618, end: 20210623
  137. PANTOPRAZOLE [Concomitant]
     Active Substance: PANTOPRAZOLE
     Dates: start: 20210608, end: 20210610
  138. PANTOPRAZOLE [Concomitant]
     Active Substance: PANTOPRAZOLE
     Dates: start: 20210608, end: 20210610
  139. PANTOPRAZOLE [Concomitant]
     Active Substance: PANTOPRAZOLE
     Dates: start: 20210317, end: 20210607
  140. PANTOPRAZOLE [Concomitant]
     Active Substance: PANTOPRAZOLE
     Dates: start: 20210618, end: 20210623
  141. CARBOXYMETHYLCELLULOSE SODIUM [Concomitant]
     Active Substance: CARBOXYMETHYLCELLULOSE SODIUM
  142. CARBOXYMETHYLCELLULOSE SODIUM [Concomitant]
     Active Substance: CARBOXYMETHYLCELLULOSE SODIUM
     Dates: start: 20210105, end: 20210413
  143. AMOXICILLIN\CLAVULANATE POTASSIUM [Concomitant]
     Active Substance: AMOXICILLIN\CLAVULANATE POTASSIUM
  144. Elomel [Concomitant]
     Indication: Product used for unknown indication
  145. Elomel [Concomitant]
  146. SALINE [Concomitant]
     Active Substance: SODIUM CHLORIDE
     Indication: Product used for unknown indication
  147. Metogastron [Concomitant]
     Dates: start: 20200506
  148. MARINOL [Concomitant]
     Active Substance: DRONABINOL
     Indication: Gastrointestinal disorder
     Dates: start: 20210608, end: 20210612
  149. TUCATINIB [Concomitant]
     Active Substance: TUCATINIB
     Indication: Breast cancer metastatic
     Dosage: 300 MG, BID
     Route: 048
     Dates: start: 20201230, end: 20210210
  150. Dexagenta [Concomitant]
     Indication: Brain oedema
     Dates: start: 20171004, end: 20171006
  151. Dexagenta [Concomitant]
     Dates: start: 20171007, end: 20171008
  152. Morapid [Concomitant]
     Indication: Dyspnoea
     Dates: start: 20210616, end: 20210623
  153. Morapid [Concomitant]
     Dates: start: 20210521, end: 20210616
  154. AMPHO-MORONAL [Concomitant]
     Active Substance: AMPHOTERICIN B
     Indication: Product used for unknown indication
  155. Healonid [Concomitant]
     Indication: Product used for unknown indication
     Route: 065
  156. ONDANSETRON HYDROCHLORIDE [Concomitant]
     Active Substance: ONDANSETRON HYDROCHLORIDE
     Indication: Gastrointestinal disorder
     Route: 065
     Dates: start: 20210611, end: 20210616
  157. ONDANSETRON HYDROCHLORIDE [Concomitant]
     Active Substance: ONDANSETRON HYDROCHLORIDE
     Route: 065
     Dates: start: 20200506
  158. ONDANSETRON HYDROCHLORIDE [Concomitant]
     Active Substance: ONDANSETRON HYDROCHLORIDE
     Dates: start: 20170329, end: 20170809
  159. AMOXICILLIN\CLAVULANATE POTASSIUM [Concomitant]
     Active Substance: AMOXICILLIN\CLAVULANATE POTASSIUM
     Indication: Product used for unknown indication
     Dosage: 1 G, QD
     Dates: start: 20170711, end: 20170713
  160. AMOXICILLIN\CLAVULANATE POTASSIUM [Concomitant]
     Active Substance: AMOXICILLIN\CLAVULANATE POTASSIUM
     Dates: start: 20200604, end: 20200605
  161. FILGRASTIM [Concomitant]
     Active Substance: FILGRASTIM
     Indication: Product used for unknown indication
     Route: 058
     Dates: start: 20170704, end: 20170708
  162. FILGRASTIM [Concomitant]
     Active Substance: FILGRASTIM
     Dates: start: 20200701
  163. LIDOCAINE [Concomitant]
     Active Substance: LIDOCAINE
     Indication: Product used for unknown indication
     Dates: start: 20200610, end: 20200610
  164. Cal c vita [Concomitant]
     Dates: start: 20170203, end: 20210612
  165. Calcium genericon [Concomitant]
     Dates: start: 20170203
  166. POTASSIUM CHLORIDE [Concomitant]
     Active Substance: POTASSIUM CHLORIDE
     Indication: Product used for unknown indication
  167. LYRICA [Concomitant]
     Active Substance: PREGABALIN
     Indication: Product used for unknown indication
     Dosage: 25 MG, QD
     Dates: start: 20170428, end: 20180123
  168. LYRICA [Concomitant]
     Active Substance: PREGABALIN
     Indication: Product used for unknown indication
     Route: 065
     Dates: start: 20190821, end: 20210616
  169. AUGMENTIN [Concomitant]
     Active Substance: AMOXICILLIN\CLAVULANATE POTASSIUM
     Indication: Product used for unknown indication
     Dates: start: 20170710, end: 20170710
  170. AUGMENTIN [Concomitant]
     Active Substance: AMOXICILLIN\CLAVULANATE POTASSIUM
     Indication: Product used for unknown indication
  171. SODIUM CACODYLATE [Concomitant]
     Active Substance: SODIUM CACODYLATE
     Indication: Product used for unknown indication
     Route: 065
     Dates: start: 20210616, end: 20210623
  172. SODIUM CACODYLATE [Concomitant]
     Active Substance: SODIUM CACODYLATE
     Indication: Dyspnoea
     Dates: start: 20210521, end: 20210616
  173. SODIUM CACODYLATE [Concomitant]
     Active Substance: SODIUM CACODYLATE
     Indication: Dyspnoea
  174. SODIUM CACODYLATE [Concomitant]
     Active Substance: SODIUM CACODYLATE
     Indication: Dyspnoea
  175. CEFEPIME [Concomitant]
     Active Substance: CEFEPIME HYDROCHLORIDE
     Indication: Product used for unknown indication
     Route: 065
  176. CEFEPIME [Concomitant]
     Active Substance: CEFEPIME HYDROCHLORIDE
     Indication: Product used for unknown indication
  177. Halset [Concomitant]
     Indication: Cough
     Dates: start: 20210611, end: 20210615
  178. Actimaris [Concomitant]
     Indication: Product used for unknown indication
     Dates: start: 20200108, end: 20200128
  179. TRAZODONE HYDROCHLORIDE [Concomitant]
     Active Substance: TRAZODONE HYDROCHLORIDE
  180. FILGRASTIM [Concomitant]
     Active Substance: FILGRASTIM
  181. SILICON [Concomitant]
     Active Substance: SILICON
  182. MORPHINE [Concomitant]
     Active Substance: MORPHINE
  183. CETYLPYRIDINIUM CHLORIDE [Concomitant]
     Active Substance: CETYLPYRIDINIUM CHLORIDE
  184. APREPITANT [Concomitant]
     Active Substance: APREPITANT
  185. Motrim [Concomitant]
  186. DROPERIDOL [Concomitant]
     Active Substance: DROPERIDOL

REACTIONS (25)
  - Metastases to central nervous system [Not Recovered/Not Resolved]
  - Brain oedema [Not Recovered/Not Resolved]
  - Metastases to lymph nodes [Not Recovered/Not Resolved]
  - Streptococcal sepsis [Recovered/Resolved]
  - Pseudomonal sepsis [Recovered/Resolved]
  - Sepsis [Recovered/Resolved]
  - Vascular device infection [Recovered/Resolved]
  - Nausea [Recovered/Resolved]
  - Fatigue [Recovered/Resolved]
  - C-reactive protein increased [Not Recovered/Not Resolved]
  - Varicose vein [Not Recovered/Not Resolved]
  - Varicose vein [Not Recovered/Not Resolved]
  - Skin fissures [Recovered/Resolved]
  - Nail bed inflammation [Unknown]
  - Restlessness [Unknown]
  - Back pain [Recovered/Resolved]
  - Vomiting [Recovered/Resolved]
  - Pleural effusion [Recovered/Resolved]
  - Candida infection [Recovered/Resolved]
  - Paronychia [Recovered/Resolved]
  - Eczema [Not Recovered/Not Resolved]
  - Nasal mucosal disorder [Recovered/Resolved]
  - Intentional product use issue [Unknown]
  - Intentional product use issue [Unknown]
  - Off label use [Unknown]

NARRATIVE: CASE EVENT DATE: 20170921
